FAERS Safety Report 21018243 (Version 3)
Quarter: 2023Q4

REPORT INFORMATION
  Report Type: Report from Study
  Country: GB (occurrence: GB)
  Receive Date: 20220628
  Receipt Date: 20231105
  Transmission Date: 20240110
  Serious: Yes (Other)
  Sender: FDA-Public Use
  Company Number: GB-NOVARTISPH-NVSC2022GB146874

PATIENT
  Sex: Female

DRUGS (2)
  1. COSENTYX [Suspect]
     Active Substance: SECUKINUMAB
     Indication: Psoriasis
     Dosage: 150 MG, QMO
     Route: 058
     Dates: start: 20190402
  2. COSENTYX [Suspect]
     Active Substance: SECUKINUMAB
     Dosage: 300 MG, QMO
     Route: 058
     Dates: start: 2019

REACTIONS (10)
  - Type 1 diabetes mellitus [Unknown]
  - COVID-19 [Unknown]
  - Feeling abnormal [Unknown]
  - Liver disorder [Unknown]
  - Suspected COVID-19 [Unknown]
  - Pain [Unknown]
  - Headache [Unknown]
  - Nasal congestion [Unknown]
  - Influenza [Unknown]
  - Incorrect dose administered [Unknown]

NARRATIVE: CASE EVENT DATE: 20190402
